FAERS Safety Report 24710067 (Version 1)
Quarter: 2024Q4

REPORT INFORMATION
  Report Type: Other
  Country: FR (occurrence: FR)
  Receive Date: 20241209
  Receipt Date: 20241209
  Transmission Date: 20250114
  Serious: Yes (Other)
  Sender: ANI
  Company Number: FR-ANIPHARMA-013106

PATIENT
  Age: 76 Year
  Sex: Female

DRUGS (2)
  1. CYCLOPHOSPHAMIDE [Suspect]
     Active Substance: CYCLOPHOSPHAMIDE
     Indication: Granulomatosis with polyangiitis
  2. RITUXIMAB [Concomitant]
     Active Substance: RITUXIMAB
     Indication: Granulomatosis with polyangiitis

REACTIONS (1)
  - Aspergillus infection [Recovering/Resolving]
